FAERS Safety Report 16754391 (Version 1)
Quarter: 2019Q3

REPORT INFORMATION
  Report Type: Spontaneous
  Country: US (occurrence: US)
  Receive Date: 20190710
  Receipt Date: 20190710
  Transmission Date: 20191005
  Serious: Yes (Hospitalization)
  Sender: FDA-Public Use
  Company Number: None

PATIENT
  Sex: Female

DRUGS (11)
  1. CHOLECALCIF POW [Concomitant]
  2. OMEGA-3 CAP [Concomitant]
  3. DOXYCYCL HYC TAB [Concomitant]
  4. MARINOL CAP [Concomitant]
  5. POTASSIUM TAB [Concomitant]
  6. CALCIUM CARB TAB [Concomitant]
  7. ATENOLOL TAB [Concomitant]
     Active Substance: ATENOLOL
  8. ALECENSA [Suspect]
     Active Substance: ALECTINIB HYDROCHLORIDE
     Indication: DRUG THERAPY
     Route: 048
     Dates: start: 20181214
  9. ASPIRIN TAB [Concomitant]
  10. FUROSEMIDE TAB [Concomitant]
  11. HYDRPCHLOROT CAP [Concomitant]

REACTIONS (2)
  - Therapy cessation [None]
  - Myocardial infarction [None]
